FAERS Safety Report 14304688 (Version 1)
Quarter: 2017Q4

REPORT INFORMATION
  Report Type: Spontaneous
  Country: JP (occurrence: JP)
  Receive Date: 20171219
  Receipt Date: 20171219
  Transmission Date: 20180321
  Serious: Yes (Life-Threatening, Other)
  Sender: FDA-Public Use
  Company Number: JP-OTSUKA-JP-2014-16075

PATIENT
  Age: 46 Year
  Sex: Male
  Weight: 54.3 kg

DRUGS (12)
  1. BIO-THREE [Concomitant]
     Active Substance: HERBALS
     Indication: PRODUCT USED FOR UNKNOWN INDICATION
     Dosage: UNK
     Route: 048
     Dates: start: 20140325, end: 20140707
  2. WYPAX [Concomitant]
     Active Substance: LORAZEPAM
     Indication: PRODUCT USED FOR UNKNOWN INDICATION
     Dosage: UNK
     Route: 048
     Dates: start: 20140325, end: 20140707
  3. MAGMITT [Concomitant]
     Active Substance: MAGNESIUM OXIDE
     Indication: PRODUCT USED FOR UNKNOWN INDICATION
     Dosage: UNK
     Route: 048
     Dates: start: 20140325, end: 20140707
  4. SENNARIDE [Concomitant]
     Active Substance: SENNOSIDES A AND B
     Indication: PRODUCT USED FOR UNKNOWN INDICATION
     Dosage: UNK
     Route: 048
     Dates: start: 20140325, end: 20140707
  5. ABILIFY [Suspect]
     Active Substance: ARIPIPRAZOLE
     Indication: DELUSIONAL DISORDER, UNSPECIFIED TYPE
     Dosage: 24 MG, QD
     Route: 048
     Dates: start: 20140625, end: 20140707
  6. ABILIFY [Suspect]
     Active Substance: ARIPIPRAZOLE
     Indication: DELUSIONAL DISORDER, UNSPECIFIED TYPE
     Dosage: 12 MG, QD
     Route: 048
     Dates: start: 20140610, end: 20140624
  7. ABILIFY [Suspect]
     Active Substance: ARIPIPRAZOLE
     Indication: DELUSIONAL DISORDER, UNSPECIFIED TYPE
     Dosage: 12 MG, QD
     Route: 048
     Dates: start: 20140618, end: 20140624
  8. FLUNITRAZEPAM [Concomitant]
     Active Substance: FLUNITRAZEPAM
     Indication: PRODUCT USED FOR UNKNOWN INDICATION
     Dosage: UNK
     Route: 065
     Dates: start: 20140325
  9. LORAZEPAM. [Concomitant]
     Active Substance: LORAZEPAM
     Indication: PRODUCT USED FOR UNKNOWN INDICATION
     Route: 065
  10. FLUNITRAZEPAM [Concomitant]
     Active Substance: FLUNITRAZEPAM
     Indication: PRODUCT USED FOR UNKNOWN INDICATION
     Route: 065
  11. BIPERIDEN HCL [Concomitant]
     Active Substance: BIPERIDEN HYDROCHLORIDE
     Indication: PRODUCT USED FOR UNKNOWN INDICATION
     Route: 065
  12. PERPHENAZINE MALEATE [Concomitant]
     Active Substance: PERPHENAZINE DIMALEATE
     Indication: PRODUCT USED FOR UNKNOWN INDICATION
     Route: 065

REACTIONS (2)
  - Neuroleptic malignant syndrome [Unknown]
  - Acute kidney injury [Unknown]

NARRATIVE: CASE EVENT DATE: 20140707
